FAERS Safety Report 9770968 (Version 1)
Quarter: 2013Q4

REPORT INFORMATION
  Report Type: Spontaneous
  Country: TR (occurrence: TR)
  Receive Date: 20131218
  Receipt Date: 20131218
  Transmission Date: 20140711
  Serious: Yes (Other)
  Sender: FDA-Public Use
  Company Number: TR-TEVA-449371ISR

PATIENT
  Sex: 0

DRUGS (3)
  1. CISPLATIN [Suspect]
  2. ETOPOSIDE [Suspect]
  3. BLEOMYCIN [Suspect]

REACTIONS (1)
  - Renal failure chronic [Unknown]
